FAERS Safety Report 19159664 (Version 2)
Quarter: 2021Q2

REPORT INFORMATION
  Report Type: Spontaneous
  Country: CH (occurrence: CH)
  Receive Date: 20210420
  Receipt Date: 20210506
  Transmission Date: 20210717
  Serious: Yes (Hospitalization, Other)
  Sender: FDA-Public Use
  Company Number: CH-009507513-2104CHE003933

PATIENT
  Age: 35 Year
  Sex: Female
  Weight: 61 kg

DRUGS (3)
  1. DARUNAVIR [Suspect]
     Active Substance: DARUNAVIR
     Dosage: 800 MILLIGRAM, DAILY
     Dates: start: 20210329
  2. NORVIR [Suspect]
     Active Substance: RITONAVIR
     Dosage: 100 MILLIGRAM, DAILY
     Dates: start: 20210329
  3. MK?1439 [Suspect]
     Active Substance: DORAVIRINE
     Dosage: 100 MILLIGRAM, DAILY
     Route: 048
     Dates: start: 20210327

REACTIONS (11)
  - Cough [Unknown]
  - Hyperthyroidism [Recovering/Resolving]
  - Eosinophilia [Unknown]
  - Electrocardiogram abnormal [Unknown]
  - Seizure [Recovering/Resolving]
  - Dyspnoea exertional [Unknown]
  - Drug hypersensitivity [Unknown]
  - Nausea [Recovered/Resolved]
  - Chest discomfort [Unknown]
  - Product dose omission issue [Unknown]
  - Vomiting [Recovering/Resolving]

NARRATIVE: CASE EVENT DATE: 20210327
